FAERS Safety Report 23249472 (Version 1)
Quarter: 2023Q4

REPORT INFORMATION
  Report Type: Spontaneous
  Country: FR (occurrence: None)
  Receive Date: 20231201
  Receipt Date: 20231201
  Transmission Date: 20240109
  Serious: Yes (Life-Threatening)
  Sender: FDA-Public Use
  Company Number: 2023A269376

PATIENT
  Age: 62 Year
  Sex: Female
  Weight: 74 kg

DRUGS (1)
  1. XIGDUO XR [Suspect]
     Active Substance: DAPAGLIFLOZIN PROPANEDIOL\METFORMIN HYDROCHLORIDE
     Indication: Type 2 diabetes mellitus
     Dosage: 5 MG/1000 MG
     Route: 048
     Dates: start: 20231115, end: 20231117

REACTIONS (1)
  - Cellulite [Not Recovered/Not Resolved]

NARRATIVE: CASE EVENT DATE: 20231116
